FAERS Safety Report 7089316-0 (Version None)
Quarter: 2010Q4

REPORT INFORMATION
  Report Type: 
  Country: None (occurrence: None)
  Receive Date: 20101108
  Receipt Date: 20101028
  Transmission Date: 20110411
  Serious: Yes (Death)
  Sender: FDA-Public Use
  Company Number: FR-JNJFOC-20101100710

PATIENT
  Sex: Female

DRUGS (2)
  1. IXPRIM [Suspect]
     Indication: PRODUCT USED FOR UNKNOWN INDICATION
     Route: 048
  2. FLUINDIONE [Interacting]
     Indication: PULMONARY EMBOLISM
     Route: 065

REACTIONS (2)
  - DEATH [None]
  - DRUG INTERACTION [None]
